FAERS Safety Report 5234127-1 (Version None)
Quarter: 2007Q1

REPORT INFORMATION
  Report Type: 
  Country: None (occurrence: None)
  Receive Date: 20070208
  Receipt Date: 20070206
  Transmission Date: 20070707
  Serious: Yes (Life-Threatening)
  Sender: FDA-Public Use
  Company Number: FR-MERCK-0612FRA00091

PATIENT
  Age: 69 Year
  Sex: Female

DRUGS (6)
  1. ONDANSETRON HYDROCHLORIDE [Concomitant]
     Indication: PROPHYLAXIS OF NAUSEA AND VOMITING
     Route: 048
     Dates: start: 20061102, end: 20061105
  2. EMEND [Suspect]
     Indication: PROPHYLAXIS OF NAUSEA AND VOMITING
     Route: 048
     Dates: start: 20061031, end: 20061031
  3. EMEND [Suspect]
     Route: 048
     Dates: start: 20061101, end: 20061102
  4. CARBOPLATIN [Concomitant]
     Indication: OVARIAN CANCER
     Route: 042
     Dates: start: 20061031, end: 20061031
  5. DOXORUBICIN HYDROCHLORIDE [Concomitant]
     Indication: OVARIAN CANCER
     Route: 042
     Dates: start: 20061031, end: 20061031
  6. PEGFILGRASTIM [Concomitant]
     Indication: NEUTROPENIA
     Route: 058
     Dates: start: 20061101, end: 20061101

REACTIONS (1)
  - PHARYNGEAL OEDEMA [None]
